FAERS Safety Report 22212328 (Version 2)
Quarter: 2023Q2

REPORT INFORMATION
  Report Type: Spontaneous
  Country: CN (occurrence: CN)
  Receive Date: 20230414
  Receipt Date: 20230504
  Transmission Date: 20230721
  Serious: Yes (Other)
  Sender: FDA-Public Use
  Company Number: CN-ORGANON-O2304CHN001012

PATIENT
  Age: 32 Year
  Sex: Male

DRUGS (3)
  1. DESLORATADINE [Suspect]
     Active Substance: DESLORATADINE
     Indication: Rhinitis allergic
     Dosage: 8.8 MILLIGRAM ONCE DAILY
     Route: 048
     Dates: end: 20190525
  2. BUDESONIDE [Concomitant]
     Active Substance: BUDESONIDE
     Dosage: INHALED BY NOSE, BID
  3. FEBUXOSTAT [Concomitant]
     Active Substance: FEBUXOSTAT
     Indication: Hyperuricaemia
     Dosage: UNK

REACTIONS (2)
  - Drug-induced liver injury [Recovering/Resolving]
  - Dermatitis allergic [Recovered/Resolved]
